FAERS Safety Report 18211451 (Version 2)
Quarter: 2020Q3

REPORT INFORMATION
  Report Type: Spontaneous
  Country: JP (occurrence: JP)
  Receive Date: 20200831
  Receipt Date: 20200922
  Transmission Date: 20201103
  Serious: Yes (Other)
  Sender: FDA-Public Use
  Company Number: JP-009507513-2008JPN002389J

PATIENT
  Age: 77 Year
  Sex: Female

DRUGS (4)
  1. TSUMURA SANSONINTO EXTRACT GRANULES FOR ETHICAL USE (HERBALS) [Suspect]
     Active Substance: HERBALS
     Dosage: 2.5 GRAM, BID, 2.5 G AFTER DINNER, 2.5 G BEFORE BEDTIME
     Route: 048
     Dates: start: 20200521, end: 202008
  2. BELSOMRA [Suspect]
     Active Substance: SUVOREXANT
     Indication: INSOMNIA
     Dosage: 15 MILLIGRAM, QD
     Route: 048
  3. TSUMURA SANSONINTO EXTRACT GRANULES FOR ETHICAL USE (HERBALS) [Suspect]
     Active Substance: HERBALS
     Indication: INSOMNIA
     Dosage: 2.5 GRAM, BID
     Route: 048
     Dates: start: 201905, end: 201907
  4. LOSARTAN K [Concomitant]
     Active Substance: LOSARTAN POTASSIUM
     Indication: HYPERTENSION
     Dosage: 50 MILLIGRAM, QD
     Route: 048

REACTIONS (2)
  - Anxiety disorder [Unknown]
  - Hallucination [Recovered/Resolved]

NARRATIVE: CASE EVENT DATE: 202008
